FAERS Safety Report 4599297-7 (Version None)
Quarter: 2005Q1

REPORT INFORMATION
  Report Type: 
  Country: None (occurrence: None)
  Receive Date: 20050303
  Receipt Date: 20050303
  Transmission Date: 20050727
  Serious: Yes (Other)
  Sender: FDA-Public Use
  Company Number: None

PATIENT
  Sex: Female
  Weight: 58.514 kg

DRUGS (3)
  1. GEODON [Suspect]
     Indication: AGGRESSION
     Dosage: 40 MG / 60 MG  QAM / QPM ORAL
     Route: 048
     Dates: start: 20020129, end: 20050125
  2. GEODON [Suspect]
     Indication: AUTISM
     Dosage: 40 MG / 60 MG  QAM / QPM ORAL
     Route: 048
     Dates: start: 20020129, end: 20050125
  3. RISPERDAL [Concomitant]

REACTIONS (2)
  - AMENORRHOEA [None]
  - BLOOD PROLACTIN INCREASED [None]
